FAERS Safety Report 23836977 (Version 1)
Quarter: 2024Q2

REPORT INFORMATION
  Report Type: Spontaneous
  Country: US (occurrence: US)
  Receive Date: 20240509
  Receipt Date: 20240509
  Transmission Date: 20240716
  Serious: Yes (Hospitalization, Other)
  Sender: FDA-Public Use
  Company Number: US-MLMSERVICE-20240429-PI041917-00148-1

PATIENT
  Age: 20 Year
  Sex: Male

DRUGS (2)
  1. PROSCAR [Suspect]
     Active Substance: FINASTERIDE
     Indication: Androgenetic alopecia
     Dosage: 1 MILLIGRAM, QD (LOW- DOSE)
     Route: 065
  2. PROSCAR [Suspect]
     Active Substance: FINASTERIDE
     Dosage: 0.5 MILLIGRAM, QD
     Route: 065

REACTIONS (1)
  - Gynaecomastia [Recovered/Resolved]
